FAERS Safety Report 22122205 (Version 1)
Quarter: 2023Q1

REPORT INFORMATION
  Report Type: Spontaneous
  Country: US (occurrence: None)
  Receive Date: 20230321
  Receipt Date: 20230321
  Transmission Date: 20230418
  Serious: Yes (Hospitalization)
  Sender: FDA-Public Use
  Company Number: None

PATIENT
  Age: 68 Year
  Sex: Male
  Weight: 100.7 kg

DRUGS (4)
  1. CYRAMZA [Suspect]
     Active Substance: RAMUCIRUMAB
     Dosage: OTHER FREQUENCY : ONCE;?
     Route: 042
     Dates: start: 20230320, end: 20230320
  2. DEXAMETHASONE [Concomitant]
     Dates: start: 20230320, end: 20230320
  3. GRANISETRON [Concomitant]
     Dates: start: 20230320, end: 20230320
  4. DIPHENHYDRAMINE [Concomitant]
     Active Substance: DIPHENHYDRAMINE
     Dates: start: 20230320, end: 20230320

REACTIONS (5)
  - Unresponsive to stimuli [None]
  - Hypotension [None]
  - Hyperhidrosis [None]
  - Blood glucose increased [None]
  - Mental status changes [None]

NARRATIVE: CASE EVENT DATE: 20230320
